FAERS Safety Report 8092066 (Version 4)
Quarter: 2014Q1

REPORT INFORMATION
  Report Type: Report from Study
  Country: US (occurrence: US)
  Receive Date: 20110816
  Receipt Date: 20140305
  Transmission Date: 20141002
  Serious: Yes (Hospitalization)
  Sender: FDA-Public Use
  Company Number: PHHY2011US67781

PATIENT
  Age: 53 Year
  Sex: Male

DRUGS (15)
  1. NEORAL [Suspect]
     Indication: RENAL TRANSPLANT
     Dosage: 100 MG, BID
     Dates: start: 2006
  2. NEORAL [Suspect]
     Dosage: 50 MG, BID
     Dates: start: 20110726
  3. NEORAL [Suspect]
     Dosage: 250 MG, QD
     Route: 048
  4. MYFORTIC [Suspect]
     Indication: RENAL TRANSPLANT
     Dosage: 720 MG, BID
     Dates: start: 2006
  5. VALTURNA [Concomitant]
     Dosage: (300-320MG)UKN, QD
     Dates: start: 20110722
  6. HYDROCODONE W/ACETAMINOPHEN [Concomitant]
     Dosage: UNK UKN, UNK(PRN)
  7. COLCHICINE [Concomitant]
     Dosage: 0.6 MG, BID
     Dates: start: 20110413
  8. PREDNISONE [Concomitant]
     Dosage: 5 MG, QD
     Dates: start: 20100927
  9. ZOCOR ^DIECKMANN^ [Concomitant]
     Dosage: 40 MG, QD
     Dates: start: 20100811
  10. METOPROLOL SUCCINATE [Concomitant]
     Dosage: 100 MG, UNK
     Dates: start: 20091216
  11. VITAMIN D [Concomitant]
     Dosage: 1000 IU, BID
     Dates: start: 20080711
  12. FUROSEMIDE [Concomitant]
     Dosage: 40 MG, QD
     Dates: start: 20110425
  13. BACTROBAN                               /NET/ [Concomitant]
     Dosage: 2 %, (AS DIRECTED)
  14. OMEPRAZOLE [Concomitant]
     Dosage: 40 MG, QD
  15. CLONIDINE HYDROCHLORIDE [Concomitant]
     Dosage: 0.2 MG, BID

REACTIONS (11)
  - Hydronephrosis [Recovered/Resolved]
  - Creatinine renal clearance abnormal [Recovering/Resolving]
  - Blood creatinine increased [Unknown]
  - Urinary retention [Recovering/Resolving]
  - Red blood cell count decreased [Unknown]
  - Urinary tract infection [Recovering/Resolving]
  - Cystitis [Unknown]
  - Ureteritis [Recovering/Resolving]
  - Enterobacter infection [Recovering/Resolving]
  - Vitamin D decreased [Unknown]
  - Immunosuppressant drug level decreased [Unknown]
